FAERS Safety Report 5950907-9 (Version None)
Quarter: 2008Q4

REPORT INFORMATION
  Report Type: 
  Country: None (occurrence: None)
  Receive Date: 20081112
  Receipt Date: 20081031
  Transmission Date: 20090506
  Serious: Yes (Other)
  Sender: FDA-Public Use
  Company Number: US-PFIZER INC-2008042648

PATIENT
  Sex: Male
  Weight: 81.6 kg

DRUGS (6)
  1. CHANTIX [Suspect]
     Indication: SMOKING CESSATION THERAPY
     Dates: start: 20080301, end: 20080301
  2. CHANTIX [Suspect]
     Indication: TOBACCO ABUSE
  3. SYMBYAX [Suspect]
  4. CITALOPRAM HYDROBROMIDE [Concomitant]
  5. PREVACID [Concomitant]
  6. MESALAMINE [Concomitant]

REACTIONS (8)
  - ANGER [None]
  - BIPOLAR DISORDER [None]
  - DEPRESSED MOOD [None]
  - FEELING GUILTY [None]
  - INSOMNIA [None]
  - MOVEMENT DISORDER [None]
  - SELF-INJURIOUS IDEATION [None]
  - SNORING [None]
